FAERS Safety Report 5800482-4 (Version None)
Quarter: 2008Q3

REPORT INFORMATION
  Report Type: 
  Country: None (occurrence: None)
  Receive Date: 20080703
  Receipt Date: 20080630
  Transmission Date: 20090109
  Serious: Yes (Hospitalization)
  Sender: FDA-Public Use
  Company Number: A0735377A

PATIENT
  Sex: Female

DRUGS (3)
  1. WELLBUTRIN XL [Suspect]
     Indication: DEPRESSION
     Dosage: 150MG PER DAY
     Route: 048
     Dates: start: 20020101
  2. TOPROL-XL [Concomitant]
  3. NEXIUM [Concomitant]

REACTIONS (8)
  - BACK DISORDER [None]
  - BLOOD PRESSURE INCREASED [None]
  - DEAFNESS [None]
  - DISABILITY [None]
  - GASTROOESOPHAGEAL REFLUX DISEASE [None]
  - HYPERTHYROIDISM [None]
  - SINUSITIS [None]
  - THYROIDECTOMY [None]
